FAERS Safety Report 5549883-2 (Version None)
Quarter: 2007Q4

REPORT INFORMATION
  Report Type: 
  Country: None (occurrence: None)
  Receive Date: 20071212
  Receipt Date: 20070418
  Transmission Date: 20080405
  Serious: No
  Sender: FDA-Public Use
  Company Number: US-AMGEN-KDL220361

PATIENT
  Sex: Female

DRUGS (4)
  1. ENBREL [Suspect]
     Indication: OSTEOARTHRITIS
     Route: 058
     Dates: start: 20070402
  2. ENBREL [Suspect]
     Indication: POLYMYALGIA RHEUMATICA
  3. ENBREL [Suspect]
     Indication: DRUG USE FOR UNKNOWN INDICATION
  4. ARAVA [Concomitant]
     Route: 048
     Dates: start: 20070402

REACTIONS (2)
  - INJECTION SITE PAIN [None]
  - INJECTION SITE RASH [None]
